FAERS Safety Report 9844099 (Version 1)
Quarter: 2014Q1

REPORT INFORMATION
  Report Type: Spontaneous
  Country: US (occurrence: US)
  Receive Date: 20140127
  Receipt Date: 20140127
  Transmission Date: 20141002
  Serious: Yes (Other)
  Sender: FDA-Public Use
  Company Number: US-AMGEN-USASP2014004592

PATIENT
  Age: 57 Year
  Sex: Female
  Weight: 83.9 kg

DRUGS (8)
  1. ENBREL [Suspect]
     Indication: RHEUMATOID ARTHRITIS
     Dosage: UNK
     Route: 058
     Dates: start: 201201, end: 20140107
  2. DIETHYLPROPION HCL [Concomitant]
     Dosage: UNK
  3. FOLIC ACID [Concomitant]
     Dosage: UNK
  4. HYDROCODONE/ACETAMINOPHEN          /00607101/ [Concomitant]
     Dosage: UNK
  5. METFORMIN                          /00082702/ [Concomitant]
     Dosage: UNK
  6. METHOTREXATE [Concomitant]
     Dosage: UNK
  7. PROZAC [Concomitant]
     Dosage: UNK
  8. VITAMIN B COMPLEX [Concomitant]
     Dosage: UNK

REACTIONS (5)
  - White matter lesion [Unknown]
  - Dyskinesia [Unknown]
  - Respiratory tract congestion [Unknown]
  - Rheumatoid arthritis [Unknown]
  - Arthralgia [Unknown]
